FAERS Safety Report 5793584-2 (Version None)
Quarter: 2008Q2

REPORT INFORMATION
  Report Type: 
  Country: None (occurrence: None)
  Receive Date: 20080627
  Receipt Date: 20080616
  Transmission Date: 20081010
  Serious: Yes (Other)
  Sender: FDA-Public Use
  Company Number: US-BAYER-200810849BCC

PATIENT
  Sex: Female

DRUGS (2)
  1. ASPIRIN [Suspect]
     Indication: THROMBOSIS
     Dosage: TOTAL DAILY DOSE: 81 MG  UNIT DOSE: 81 MG
     Route: 048
  2. METANX (VITAMIN B12) [Concomitant]

REACTIONS (1)
  - THROMBOSIS [None]
